FAERS Safety Report 20736238 (Version 10)
Quarter: 2024Q1

REPORT INFORMATION
  Report Type: Spontaneous
  Country: US (occurrence: US)
  Receive Date: 20220421
  Receipt Date: 20240109
  Transmission Date: 20240409
  Serious: No
  Sender: FDA-Public Use
  Company Number: US-PFIZER INC-202101877876

PATIENT
  Age: 61 Year
  Sex: Female
  Weight: 81.65 kg

DRUGS (6)
  1. IBRANCE [Suspect]
     Active Substance: PALBOCICLIB
     Indication: Breast cancer female
     Dosage: FINISHED HER FIRST 21 DAYS ON IBRANCE
  2. IBRANCE [Suspect]
     Active Substance: PALBOCICLIB
     Indication: Metastases to bone
     Dosage: 150 MG, DAILY
  3. IBRANCE [Suspect]
     Active Substance: PALBOCICLIB
     Dosage: 100 MG, DAILY
     Dates: start: 202111
  4. IBRANCE [Suspect]
     Active Substance: PALBOCICLIB
     Dosage: 100 MG ONCE A DAY FOR 21 DAYS FOLLOWED BY 7 DAYS OFF
     Route: 048
  5. IBRANCE [Suspect]
     Active Substance: PALBOCICLIB
     Dosage: 1 TIME PER DAY FOR 21 DAYS FOLLOWED BY 7 DAYS OFF TREATMENT
     Route: 048
  6. LETROZOLE [Concomitant]
     Active Substance: LETROZOLE
     Dosage: UNK
     Dates: start: 202111

REACTIONS (5)
  - Oropharyngeal pain [Recovered/Resolved]
  - White blood cell count decreased [Not Recovered/Not Resolved]
  - Epistaxis [Recovered/Resolved]
  - Laboratory test abnormal [Not Recovered/Not Resolved]
  - Neoplasm progression [Recovered/Resolved]

NARRATIVE: CASE EVENT DATE: 20210101
